FAERS Safety Report 5376536-6 (Version None)
Quarter: 2007Q2

REPORT INFORMATION
  Report Type: 
  Country: None (occurrence: None)
  Receive Date: 20070629
  Receipt Date: 20070123
  Transmission Date: 20071010
  Serious: Yes (Death, Life-Threatening, Hospitalization)
  Sender: FDA-Public Use
  Company Number: 200603IM000209

PATIENT
  Age: 65 Year
  Sex: Male
  Weight: 59 kg

DRUGS (3)
  1. INTERFERON GAMMA-1B [Suspect]
     Indication: IDIOPATHIC PULMONARY FIBROSIS
     Dosage: SEE IMAGE
     Route: 058
     Dates: start: 20060228, end: 20060314
  2. INTERFERON GAMMA-1B [Suspect]
     Indication: IDIOPATHIC PULMONARY FIBROSIS
     Dosage: SEE IMAGE
     Route: 058
     Dates: start: 20060314
  3. METFORMIN HCL [Concomitant]

REACTIONS (10)
  - ACUTE RESPIRATORY FAILURE [None]
  - CONDITION AGGRAVATED [None]
  - HAEMODIALYSIS [None]
  - HAEMOPTYSIS [None]
  - HEPATIC FAILURE [None]
  - IDIOPATHIC PULMONARY FIBROSIS [None]
  - MULTI-ORGAN FAILURE [None]
  - RENAL FAILURE [None]
  - RESPIRATORY TRACT INFECTION [None]
  - SEPTIC SHOCK [None]
